FAERS Safety Report 5031256-2 (Version None)
Quarter: 2006Q2

REPORT INFORMATION
  Report Type: 
  Country: None (occurrence: None)
  Receive Date: 20060616
  Receipt Date: 20060531
  Transmission Date: 20061013
  Serious: Yes (Hospitalization)
  Sender: FDA-Public Use
  Company Number: FR200606000011

PATIENT
  Age: 81 Year
  Sex: Female

DRUGS (2)
  1. FORSTEO (TERIPARATIDE) PEN, DISPOSABLE [Suspect]
     Indication: OSTEOPOROSIS
     Dosage: 20 UG DAILY (1/D) SUBCUTANEOUS
     Route: 058
     Dates: start: 20051108, end: 20060401
  2. FORTEO PEN (FORTEO PEN) [Concomitant]

REACTIONS (1)
  - SUBCUTANEOUS ABSCESS [None]
